FAERS Safety Report 23225010 (Version 1)
Quarter: 2023Q4

REPORT INFORMATION
  Report Type: Spontaneous
  Country: FR (occurrence: FR)
  Receive Date: 20231124
  Receipt Date: 20231124
  Transmission Date: 20240110
  Serious: Yes (Death)
  Sender: FDA-Public Use
  Company Number: None

PATIENT
  Age: 75 Year
  Sex: Male

DRUGS (8)
  1. MOMETASONE FUROATE [Suspect]
     Active Substance: MOMETASONE FUROATE
     Indication: Cough
     Dosage: 1 DOSAGE FORM, QD
  2. DESLORATADINE [Suspect]
     Active Substance: DESLORATADINE
     Indication: Cough
     Dosage: 1 DOSAGE FORM, QD
     Route: 048
  3. LEVOTHYROXINE [Suspect]
     Active Substance: LEVOTHYROXINE
     Indication: Hypothyroidism
     Dosage: 1 DOSAGE FORM, QD
     Route: 048
  4. COMIRNATY (TOZINAMERAN) [Suspect]
     Active Substance: TOZINAMERAN
     Indication: COVID-19 immunisation
     Dosage: R?
     Route: 030
     Dates: start: 20231009, end: 20231009
  5. FENOFIBRATE [Suspect]
     Active Substance: FENOFIBRATE
     Indication: Dyslipidaemia
     Dosage: 200 MILLIGRAM, QD
     Route: 048
  6. TOVIAZ [Suspect]
     Active Substance: FESOTERODINE FUMARATE
     Indication: Bladder dysfunction
     Dosage: 1 DOSAGE FORM, QD
     Route: 048
  7. OXOMEMAZINE [Suspect]
     Active Substance: OXOMEMAZINE
     Indication: Cough
     Dosage: 1 DOSAGE FORM, QD
     Route: 048
  8. INFLUENZA VIRUS VACCINE QUADRIVALENT TYPE A+B [Suspect]
     Active Substance: INFLUENZA VIRUS VACCINE QUADRIVALENT TYPE A+B
     Indication: Influenza immunisation
     Dosage: D1
     Route: 030
     Dates: start: 20231009, end: 20231009

REACTIONS (1)
  - Death [Fatal]

NARRATIVE: CASE EVENT DATE: 20231025
